FAERS Safety Report 12184308 (Version 1)
Quarter: 2016Q1

REPORT INFORMATION
  Report Type: Spontaneous
  Country: FR (occurrence: FR)
  Receive Date: 20160316
  Receipt Date: 20160316
  Transmission Date: 20160526
  Serious: Yes (Other)
  Sender: FDA-Public Use
  Company Number: FR-PFIZER INC-2016145532

PATIENT
  Age: 42 Year
  Sex: Male

DRUGS (2)
  1. VERAPAMIL HCL [Suspect]
     Active Substance: VERAPAMIL HYDROCHLORIDE
     Indication: CLUSTER HEADACHE
     Dosage: 360 MG, DAILY
  2. LITHIUM. [Suspect]
     Active Substance: LITHIUM

REACTIONS (4)
  - Syncope [Unknown]
  - Toxicity to various agents [Unknown]
  - Sinus node dysfunction [Unknown]
  - Product use issue [Unknown]
